FAERS Safety Report 9792515 (Version 3)
Quarter: 2014Q1

REPORT INFORMATION
  Report Type: Spontaneous
  Country: BG (occurrence: BG)
  Receive Date: 20140102
  Receipt Date: 20140120
  Transmission Date: 20141002
  Serious: Yes (Death, Life-Threatening, Hospitalization, Disabling, Other)
  Sender: FDA-Public Use
  Company Number: PHHY2013BG154123

PATIENT
  Age: 59 Year
  Sex: Male
  Weight: 69 kg

DRUGS (3)
  1. ONBREZ [Suspect]
     Indication: CHRONIC OBSTRUCTIVE PULMONARY DISEASE
     Dosage: 150 UG, QD (DAILY)
     Route: 055
     Dates: start: 20121120, end: 20131122
  2. SPIRIVA [Concomitant]
     Dosage: UNK
  3. DAXAS [Concomitant]
     Dosage: UNK

REACTIONS (6)
  - Small cell lung cancer [Fatal]
  - General physical health deterioration [Fatal]
  - Asthma [Fatal]
  - Cough [Fatal]
  - Dyspnoea [Fatal]
  - Wheezing [Fatal]
